FAERS Safety Report 9386761 (Version 1)
Quarter: 2013Q3

REPORT INFORMATION
  Report Type: Spontaneous
  Country: US (occurrence: None)
  Receive Date: 20130703
  Receipt Date: 20130703
  Transmission Date: 20140515
  Serious: Yes (Other)
  Sender: FDA-Public Use
  Company Number: None

PATIENT
  Age: 68 Year
  Sex: Female
  Weight: 92.6 kg

DRUGS (2)
  1. CYMBALTA 60 MG ELI LILL [Suspect]
     Indication: DIABETIC NEUROPATHY
     Route: 048
     Dates: start: 20120913, end: 20130707
  2. CYMBALTA 60 MG ELI LILL [Suspect]
     Indication: DEPRESSION
     Route: 048
     Dates: start: 20120913, end: 20130707

REACTIONS (2)
  - Muscle twitching [None]
  - Muscle spasms [None]
